FAERS Safety Report 9110193 (Version 2)
Quarter: 2013Q1

REPORT INFORMATION
  Report Type: Report from Study
  Country: JP (occurrence: JP)
  Receive Date: 20130222
  Receipt Date: 20130312
  Transmission Date: 20140127
  Serious: Yes (Other)
  Sender: FDA-Public Use
  Company Number: JP-ASTELLAS-2013JP002038

PATIENT
  Age: 25 Year
  Sex: Male
  Weight: 137 kg

DRUGS (23)
  1. TACROLIMUS CAPSULES [Suspect]
     Indication: LUPUS NEPHRITIS
     Dosage: 2 MG, UNKNOWN/D
     Route: 048
     Dates: start: 20090501, end: 20100702
  2. TACROLIMUS CAPSULES [Suspect]
     Indication: SYSTEMIC LUPUS ERYTHEMATOSUS
     Dosage: 1 MG, UNKNOWN/D
     Route: 048
     Dates: start: 20090220, end: 20090430
  3. TACROLIMUS CAPSULES [Suspect]
     Dosage: 1 MG, UNKNOWN/D
     Route: 048
     Dates: start: 20100703, end: 20100827
  4. TACROLIMUS CAPSULES [Suspect]
     Dosage: 0.5 MG, UNKNOWN/D
     Route: 048
     Dates: start: 20101219, end: 20110318
  5. PREDNISOLONE [Concomitant]
     Indication: LUPUS NEPHRITIS
     Dosage: 10 MG, UNKNOWN/D
     Route: 048
     Dates: end: 20100528
  6. PREDNISOLONE [Concomitant]
     Indication: SYSTEMIC LUPUS ERYTHEMATOSUS
     Dosage: 20 MG, UNKNOWN/D
     Route: 048
     Dates: start: 20100529, end: 20100827
  7. PREDNISOLONE [Concomitant]
     Dosage: 30 MG, UNKNOWN/D
     Route: 048
     Dates: start: 20100828, end: 20100924
  8. PREDNISOLONE [Concomitant]
     Dosage: 25 MG, UNKNOWN/D
     Route: 048
     Dates: start: 20100925, end: 20101022
  9. PREDNISOLONE [Concomitant]
     Dosage: 40 MG, UNKNOWN/D
     Route: 048
     Dates: start: 20101023, end: 20101122
  10. PREDNISOLONE [Concomitant]
     Dosage: 35 MG, UNKNOWN/D
     Route: 048
     Dates: start: 20101123, end: 20110203
  11. PREDNISOLONE [Concomitant]
     Dosage: 20 MG, UNKNOWN/D
     Route: 048
     Dates: start: 20110204, end: 20110613
  12. PREDNISOLONE [Concomitant]
     Dosage: 15 MG, UNKNOWN/D
     Route: 048
     Dates: start: 20110614, end: 20110911
  13. PREDNISOLONE [Concomitant]
     Dosage: 12.5 MG, UNKNOWN/D
     Route: 048
     Dates: start: 20110912, end: 20111020
  14. PREDNISOLONE [Concomitant]
     Dosage: 10 MG, UNKNOWN/D
     Route: 048
     Dates: start: 20111021, end: 20111215
  15. PREDNISOLONE [Concomitant]
     Dosage: 9 MG, UNKNOWN/D
     Route: 048
     Dates: start: 20111216, end: 20120126
  16. PREDNISOLONE [Concomitant]
     Dosage: 8 MG, UNKNOWN/D
     Route: 048
     Dates: start: 20120127
  17. BREDININ [Concomitant]
     Indication: LUPUS NEPHRITIS
     Dosage: 300 MG, UNKNOWN/D
     Route: 048
     Dates: end: 20101108
  18. BREDININ [Concomitant]
     Indication: SYSTEMIC LUPUS ERYTHEMATOSUS
  19. LIPITOR [Concomitant]
     Indication: HYPERLIPIDAEMIA
     Dosage: 10 MG, UNKNOWN/D
     Route: 048
  20. LIPITOR [Concomitant]
     Dosage: 5 MG, UNKNOWN/D
     Route: 048
  21. OLMETEC [Concomitant]
     Dosage: 20 MG, UNKNOWN/D
     Route: 048
  22. OLMETEC [Concomitant]
     Dosage: 40 MG, UNKNOWN/D
     Route: 048
  23. AMLODIPINE                         /00972402/ [Concomitant]
     Dosage: 10 MG, UNKNOWN/D
     Route: 048

REACTIONS (1)
  - Renal disorder [Not Recovered/Not Resolved]
